FAERS Safety Report 15794107 (Version 1)
Quarter: 2019Q1

REPORT INFORMATION
  Report Type: Spontaneous
  Country: US (occurrence: US)
  Receive Date: 20190106
  Receipt Date: 20190106
  Transmission Date: 20190417
  Serious: Yes (Hospitalization, Other)
  Sender: FDA-Public Use
  Company Number: None

PATIENT
  Age: 70 Year
  Sex: Female
  Weight: 72 kg

DRUGS (1)
  1. PRIALT [Suspect]
     Active Substance: ZICONOTIDE ACETATE
     Indication: PAIN
     Dosage: OTHER ROUTE:PAIN PUMP?
     Dates: start: 20180915, end: 20181220

REACTIONS (4)
  - Delusion [None]
  - Cardiac arrest [None]
  - Psychotic disorder [None]
  - Post procedural complication [None]

NARRATIVE: CASE EVENT DATE: 20181206
